FAERS Safety Report 18726091 (Version 3)
Quarter: 2021Q1

REPORT INFORMATION
  Report Type: Report from Study
  Country: US (occurrence: US)
  Receive Date: 20210111
  Receipt Date: 20210203
  Transmission Date: 20210419
  Serious: Yes (Hospitalization)
  Sender: FDA-Public Use
  Company Number: NVSC2020US348516

PATIENT
  Sex: Male
  Weight: 86.18 kg

DRUGS (1)
  1. ENTRESTO [Suspect]
     Active Substance: SACUBITRIL\VALSARTAN
     Indication: CARDIAC FAILURE CHRONIC
     Dosage: 50 MG (24/26), BID
     Route: 048

REACTIONS (7)
  - Weight increased [Unknown]
  - Hunger [Unknown]
  - Renal disorder [Unknown]
  - Ventricular extrasystoles [Unknown]
  - Blood cholesterol increased [Unknown]
  - Swelling [Unknown]
  - Constipation [Unknown]
